FAERS Safety Report 9444691 (Version 2)
Quarter: 2013Q3

REPORT INFORMATION
  Report Type: Spontaneous
  Country: NO (occurrence: NO)
  Receive Date: 20130807
  Receipt Date: 20130902
  Transmission Date: 20140515
  Serious: Yes (Death)
  Sender: FDA-Public Use
  Company Number: NO-PFIZER INC-2013227222

PATIENT
  Sex: 0

DRUGS (1)
  1. DOLCONTIN [Suspect]
     Dosage: UNK

REACTIONS (2)
  - Overdose [Fatal]
  - Death [Fatal]
